FAERS Safety Report 8619576-3 (Version None)
Quarter: 2012Q3

REPORT INFORMATION
  Report Type: 
  Country: None (occurrence: None)
  Receive Date: 20120824
  Receipt Date: 20120416
  Transmission Date: 20120928
  Serious: No
  Sender: FDA-Public Use
  Company Number: US-ASTRAZENECA-2012SE25014

PATIENT
  Age: 67 Year
  Sex: Male
  Weight: 99.8 kg

DRUGS (4)
  1. NADOLOL [Concomitant]
  2. MAGNESIUM HYDROXIDE TAB [Concomitant]
     Indication: DYSPEPSIA
  3. SYMBICORT [Suspect]
     Indication: CHRONIC OBSTRUCTIVE PULMONARY DISEASE
     Dosage: 160/4.5, 2 PUFFS, TWO TIMES A DAY
     Route: 055
     Dates: start: 20110801
  4. LOVASTATIN [Concomitant]

REACTIONS (5)
  - THROAT IRRITATION [None]
  - WEIGHT INCREASED [None]
  - DYSPEPSIA [None]
  - DYSPHONIA [None]
  - OROPHARYNGEAL DISCOMFORT [None]
